FAERS Safety Report 18622049 (Version 4)
Quarter: 2021Q2

REPORT INFORMATION
  Report Type: Spontaneous
  Country: JP (occurrence: JP)
  Receive Date: 20201216
  Receipt Date: 20210416
  Transmission Date: 20210717
  Serious: Yes (Life-Threatening, Hospitalization)
  Sender: FDA-Public Use
  Company Number: JP-JNJFOC-20201202707

PATIENT
  Age: 68 Year
  Sex: Female
  Weight: 55.5 kg

DRUGS (17)
  1. SYCREST [Suspect]
     Active Substance: ASENAPINE MALEATE
     Indication: MAJOR DEPRESSION
     Route: 048
  2. SENNOSIDE [SENNOSIDE A+B CALCIUM] [Suspect]
     Active Substance: SENNOSIDES A AND B
     Indication: CONSTIPATION
     Route: 048
     Dates: end: 20201124
  3. MUCOSTA [Suspect]
     Active Substance: REBAMIPIDE
     Route: 048
     Dates: end: 20201124
  4. RISPERDAL [Suspect]
     Active Substance: RISPERIDONE
     Indication: SCHIZOPHRENIA
     Dosage: DOSE UNKNOWN
     Route: 048
  5. SYCREST [Suspect]
     Active Substance: ASENAPINE MALEATE
     Indication: MAJOR DEPRESSION
     Route: 048
     Dates: end: 20201202
  6. BROTIZOLAM [Suspect]
     Active Substance: BROTIZOLAM
     Route: 048
  7. REFLEX [Suspect]
     Active Substance: MIRTAZAPINE
     Indication: MAJOR DEPRESSION
     Route: 048
  8. REFLEX [Suspect]
     Active Substance: MIRTAZAPINE
     Indication: MAJOR DEPRESSION
     Route: 048
     Dates: end: 20201214
  9. LEXAPRO [Suspect]
     Active Substance: ESCITALOPRAM OXALATE
     Indication: MAJOR DEPRESSION
     Route: 048
     Dates: end: 20201124
  10. MYSLEE [Suspect]
     Active Substance: ZOLPIDEM TARTRATE
     Route: 048
  11. WYPAX [Suspect]
     Active Substance: LORAZEPAM
     Dosage: DOSE UNKNOWN, P.R.N
     Route: 048
  12. CALONAL [Suspect]
     Active Substance: ACETAMINOPHEN
     Indication: BACK PAIN
     Route: 048
     Dates: end: 20201124
  13. MAGNESIUM OXIDE. [Suspect]
     Active Substance: MAGNESIUM OXIDE
     Indication: CONSTIPATION
     Route: 048
     Dates: end: 20201124
  14. INVEGA [Suspect]
     Active Substance: PALIPERIDONE
     Indication: SCHIZOPHRENIA
     Route: 048
     Dates: end: 20201124
  15. RISPERDAL [Suspect]
     Active Substance: RISPERIDONE
     Indication: SCHIZOPHRENIA
     Dosage: DOSE UNKNOWN, P.R.N
     Route: 048
  16. LUNESTA [Suspect]
     Active Substance: ESZOPICLONE
     Indication: INSOMNIA
     Route: 048
     Dates: end: 20201124
  17. ELDECALCITOL [Concomitant]
     Active Substance: ELDECALCITOL
     Indication: BACK PAIN
     Route: 048

REACTIONS (11)
  - Pneumonia aspiration [Recovered/Resolved with Sequelae]
  - Loss of personal independence in daily activities [Unknown]
  - Depressed level of consciousness [Recovered/Resolved with Sequelae]
  - Malnutrition [Recovering/Resolving]
  - Sedation complication [Recovered/Resolved with Sequelae]
  - Bedridden [Unknown]
  - Off label use [Unknown]
  - Dyskinesia [Recovered/Resolved]
  - Inappropriate schedule of product administration [Unknown]
  - Language disorder [Recovered/Resolved]
  - Gait inability [Not Recovered/Not Resolved]

NARRATIVE: CASE EVENT DATE: 2020
